FAERS Safety Report 18714034 (Version 1)
Quarter: 2021Q1

REPORT INFORMATION
  Report Type: Spontaneous
  Country: US (occurrence: IE)
  Receive Date: 20210107
  Receipt Date: 20210107
  Transmission Date: 20210419
  Serious: Yes (Other)
  Sender: FDA-Public Use
  Company Number: US-TAKEDA-2021TUS000602

PATIENT
  Age: 62 Year
  Sex: Male

DRUGS (2)
  1. HUMAN ALBUMIN [Suspect]
     Active Substance: ALBUMIN HUMAN
     Indication: ALCOHOLIC LIVER DISEASE
     Dosage: UNK
     Route: 065
  2. HUMAN ALBUMIN [Suspect]
     Active Substance: ALBUMIN HUMAN
     Indication: HEPATIC FAILURE
     Dosage: UNK
     Dates: start: 20201118

REACTIONS (2)
  - No adverse event [Unknown]
  - Incorrect dose administered [Recovered/Resolved]

NARRATIVE: CASE EVENT DATE: 20201118
